FAERS Safety Report 16835811 (Version 2)
Quarter: 2019Q4

REPORT INFORMATION
  Report Type: Report from Study
  Country: US (occurrence: US)
  Receive Date: 20190920
  Receipt Date: 20191126
  Transmission Date: 20200122
  Serious: Yes (Hospitalization, Other)
  Sender: FDA-Public Use
  Company Number: US-ACTELION-A-US2019-190207

PATIENT
  Age: 72 Year
  Sex: Male
  Weight: 108.84 kg

DRUGS (13)
  1. UPTRAVI [Suspect]
     Active Substance: SELEXIPAG
     Indication: PULMONARY ARTERIAL HYPERTENSION
     Dosage: 1400 MCG, BID
     Route: 048
     Dates: start: 20190417
  2. UPTRAVI [Suspect]
     Active Substance: SELEXIPAG
     Dosage: 600 MCG
     Route: 048
  3. DILTIAZEM. [Concomitant]
     Active Substance: DILTIAZEM
  4. UPTRAVI [Suspect]
     Active Substance: SELEXIPAG
     Dosage: 1200 MCG, BID
     Route: 048
     Dates: start: 20190629, end: 20190704
  5. UPTRAVI [Suspect]
     Active Substance: SELEXIPAG
     Dosage: 1600 MCG, BID
     Route: 048
  6. UPTRAVI [Suspect]
     Active Substance: SELEXIPAG
     Dosage: 1000 MCG, BID
     Route: 048
     Dates: start: 20190705
  7. UPTRAVI [Suspect]
     Active Substance: SELEXIPAG
     Dosage: 1200 MCG
     Route: 048
  8. UPTRAVI [Suspect]
     Active Substance: SELEXIPAG
     Dosage: 400 MCG, BID
     Route: 048
     Dates: start: 20190427
  9. UPTRAVI [Suspect]
     Active Substance: SELEXIPAG
     Dosage: 1000 MCG
     Route: 048
  10. OXYCODONE [Concomitant]
     Active Substance: OXYCODONE
  11. OPSUMIT [Suspect]
     Active Substance: MACITENTAN
     Indication: PULMONARY ARTERIAL HYPERTENSION
     Dosage: 10 MG, QD
     Route: 048
  12. UPTRAVI [Suspect]
     Active Substance: SELEXIPAG
     Dosage: 800 MCG, BID
     Route: 048
  13. UPTRAVI [Suspect]
     Active Substance: SELEXIPAG
     Dosage: 200 MCG, BID
     Route: 048
     Dates: start: 20190417

REACTIONS (38)
  - Diarrhoea [Unknown]
  - Productive cough [Unknown]
  - Pain [Unknown]
  - Product dose omission [Unknown]
  - Chest pain [Unknown]
  - Sputum discoloured [Unknown]
  - Pain in jaw [Unknown]
  - Respiratory tract infection [Unknown]
  - Heart rate abnormal [Unknown]
  - Supraventricular tachycardia [Unknown]
  - Dizziness [Unknown]
  - Exostosis [Unknown]
  - Frequent bowel movements [Unknown]
  - Internal haemorrhage [Unknown]
  - Pain in extremity [Unknown]
  - Face oedema [Unknown]
  - White blood cell count increased [Unknown]
  - Dyspnoea [Unknown]
  - Transfusion [Unknown]
  - Heart rate decreased [Unknown]
  - Cough [Unknown]
  - Rash [Unknown]
  - Rash pruritic [Recovered/Resolved]
  - Respiration abnormal [Unknown]
  - Headache [Unknown]
  - Neutrophil count increased [Unknown]
  - Myalgia [Unknown]
  - Pleurisy [Unknown]
  - Dyspnoea exertional [Unknown]
  - Heart rate increased [Unknown]
  - Oedema peripheral [Unknown]
  - Abdominal pain [Unknown]
  - Weight increased [Unknown]
  - Neck pain [Unknown]
  - Arthralgia [Unknown]
  - Therapy non-responder [Unknown]
  - Wheezing [Recovering/Resolving]
  - Oxygen saturation decreased [Unknown]

NARRATIVE: CASE EVENT DATE: 20190616
